FAERS Safety Report 15333788 (Version 2)
Quarter: 2018Q3

REPORT INFORMATION
  Report Type: Spontaneous
  Country: US (occurrence: US)
  Receive Date: 20180830
  Receipt Date: 20180928
  Transmission Date: 20181010
  Serious: Yes (Other)
  Sender: FDA-Public Use
  Company Number: US-009507513-1808USA000920

PATIENT
  Age: 39 Year
  Sex: Female
  Weight: 72.11 kg

DRUGS (1)
  1. NEXPLANON [Suspect]
     Active Substance: ETONOGESTREL
     Indication: CONTRACEPTION
     Dosage: 1 IMPLANT, EVERY 3 YEARS, LEFT ARM
     Route: 059
     Dates: start: 20150826, end: 20180810

REACTIONS (4)
  - Implant site fibrosis [Recovering/Resolving]
  - Device breakage [Recovering/Resolving]
  - Device dislocation [Recovered/Resolved]
  - Complication of device removal [Recovering/Resolving]

NARRATIVE: CASE EVENT DATE: 20180727
